FAERS Safety Report 6169213-5 (Version None)
Quarter: 2009Q2

REPORT INFORMATION
  Report Type: 
  Country: None (occurrence: None)
  Receive Date: 20090424
  Receipt Date: 20090414
  Transmission Date: 20091009
  Serious: Yes (Hospitalization, Other)
  Sender: FDA-Public Use
  Company Number: 232674K08USA

PATIENT
  Age: 50 Year
  Sex: Female

DRUGS (1)
  1. REBIF [Suspect]
     Indication: MULTIPLE SCLEROSIS
     Dosage: 44 MCG, 3 IN 1 DAYS, SUBCUTANEOUS
     Route: 058
     Dates: start: 20050523

REACTIONS (11)
  - DRY MOUTH [None]
  - FAECAL INCONTINENCE [None]
  - HYPERSENSITIVITY [None]
  - INJECTION SITE NECROSIS [None]
  - LOSS OF CONSCIOUSNESS [None]
  - MICTURITION URGENCY [None]
  - PRESYNCOPE [None]
  - PROCEDURAL PAIN [None]
  - ROTATOR CUFF SYNDROME [None]
  - VOMITING [None]
  - WHITE BLOOD CELL COUNT INCREASED [None]
